FAERS Safety Report 6753951-7 (Version None)
Quarter: 2010Q2

REPORT INFORMATION
  Report Type: 
  Country: None (occurrence: None)
  Receive Date: 20100603
  Receipt Date: 20100526
  Transmission Date: 20101027
  Serious: Yes (Other)
  Sender: FDA-Public Use
  Company Number: A0861464A

PATIENT
  Age: 60 Year
  Sex: Female

DRUGS (3)
  1. PAXIL CR [Suspect]
     Indication: MAJOR DEPRESSION
     Route: 048
     Dates: start: 20090801
  2. XANAX [Concomitant]
  3. AMBIEN CR [Concomitant]

REACTIONS (3)
  - ABNORMAL BEHAVIOUR [None]
  - AGGRESSION [None]
  - ARTHRALGIA [None]
